FAERS Safety Report 11579321 (Version 9)
Quarter: 2017Q1

REPORT INFORMATION
  Report Type: Report from Study
  Country: CA (occurrence: CA)
  Receive Date: 20150930
  Receipt Date: 20170113
  Transmission Date: 20170428
  Serious: Yes (Other)
  Sender: FDA-Public Use
  Company Number: CA-INCYTE CORPORATION-2012IN001580

PATIENT
  Age: 67 Year
  Sex: Male

DRUGS (30)
  1. JAKAVI [Suspect]
     Active Substance: RUXOLITINIB
     Dosage: 20 MG, BID
     Route: 048
     Dates: start: 20120507
  2. CIALIS [Concomitant]
     Active Substance: TADALAFIL
     Route: 065
  3. JAKAVI [Suspect]
     Active Substance: RUXOLITINIB
     Dosage: 20 MG, BID
     Route: 048
     Dates: start: 20120905
  4. CIALIS [Concomitant]
     Active Substance: TADALAFIL
     Route: 065
  5. CIALIS [Concomitant]
     Active Substance: TADALAFIL
     Dosage: UNK, PRN
  6. VITAMIN B12 [Concomitant]
     Active Substance: CYANOCOBALAMIN
     Indication: PRODUCT USED FOR UNKNOWN INDICATION
     Route: 065
  7. VITAMINE [Concomitant]
     Indication: PRODUCT USED FOR UNKNOWN INDICATION
     Dosage: UNKNOWN
  8. VITAMINE [Concomitant]
     Route: 005
  9. JAKAVI [Suspect]
     Active Substance: RUXOLITINIB
     Indication: MYELOFIBROSIS
     Dosage: 20 MG, BID
     Route: 048
     Dates: start: 201204
  10. JAKAVI [Suspect]
     Active Substance: RUXOLITINIB
     Dosage: 10 MG, BID
     Route: 065
     Dates: start: 20161223
  11. ASA [Concomitant]
     Active Substance: ASPIRIN
     Dosage: 81 MG, QD
     Route: 048
  12. VITAMIN B [Concomitant]
     Active Substance: VITAMIN B
     Indication: PRODUCT USED FOR UNKNOWN INDICATION
     Dosage: UNKNOWN
     Route: 065
  13. CIALIS [Concomitant]
     Active Substance: TADALAFIL
     Route: 065
  14. MULTI VITAMIN                       /00097801/ [Concomitant]
     Indication: PRODUCT USED FOR UNKNOWN INDICATION
     Dosage: UNKNOWN
     Route: 065
  15. NICORET [Concomitant]
     Indication: PRODUCT USED FOR UNKNOWN INDICATION
     Dosage: UNKNOWN
     Route: 065
  16. VITAMIN D [Concomitant]
     Active Substance: CHOLECALCIFEROL
     Indication: PRODUCT USED FOR UNKNOWN INDICATION
     Dosage: UNKNOWN
     Route: 065
  17. CIALIS [Concomitant]
     Active Substance: TADALAFIL
     Dosage: UNK, PRN
  18. CIALIS [Concomitant]
     Active Substance: TADALAFIL
     Dosage: UNK, PRN
  19. JAKAVI [Suspect]
     Active Substance: RUXOLITINIB
     Dosage: 15 MG, BID
     Route: 048
     Dates: start: 20120905
  20. ASA [Concomitant]
     Active Substance: ASPIRIN
     Indication: PRODUCT USED FOR UNKNOWN INDICATION
     Dosage: UNKNOWN
  21. NICORET [Concomitant]
     Dosage: UNK UNK, PRN
  22. JAKAVI [Suspect]
     Active Substance: RUXOLITINIB
     Dosage: 15 MG, BID
     Route: 048
  23. ASA [Concomitant]
     Active Substance: ASPIRIN
     Dosage: 81 MG, QD
     Route: 048
  24. COENZYME [Concomitant]
     Active Substance: UBIDECARENONE
     Indication: PRODUCT USED FOR UNKNOWN INDICATION
     Dosage: UNKNOWN
     Route: 065
  25. VITAMINE [Concomitant]
     Route: 005
  26. VITAMIIN C [Concomitant]
     Active Substance: ASCORBIC ACID
     Indication: PRODUCT USED FOR UNKNOWN INDICATION
     Dosage: UNKNOWN
     Route: 065
  27. CIALIS [Concomitant]
     Active Substance: TADALAFIL
     Indication: PRODUCT USED FOR UNKNOWN INDICATION
     Dosage: UNKNOWN
     Route: 065
  28. NICORET [Concomitant]
     Dosage: UNK UNK, PRN
  29. CIALIS [Concomitant]
     Active Substance: TADALAFIL
     Dosage: UNK, PRN
  30. CIALIS [Concomitant]
     Active Substance: TADALAFIL
     Dosage: UNK, PRN

REACTIONS (24)
  - Anaemia [Unknown]
  - Vomiting [Unknown]
  - Muscle spasms [Unknown]
  - Basal cell carcinoma [Unknown]
  - Second primary malignancy [Unknown]
  - Haematospermia [Unknown]
  - Chest pain [Unknown]
  - Abdominal distension [Unknown]
  - Bone pain [Unknown]
  - Lower respiratory tract infection [Recovering/Resolving]
  - Respiratory tract infection [Recovering/Resolving]
  - Epistaxis [Unknown]
  - Pain in extremity [Unknown]
  - Blood iron increased [Unknown]
  - Platelet count decreased [Unknown]
  - Myelofibrosis [Unknown]
  - Arthralgia [Unknown]
  - Flatulence [Unknown]
  - Full blood count decreased [Recovered/Resolved]
  - Malaise [Unknown]
  - Prostatic specific antigen increased [Unknown]
  - Pruritus [Recovering/Resolving]
  - Weight increased [Recovering/Resolving]
  - Nasopharyngitis [Unknown]

NARRATIVE: CASE EVENT DATE: 20120801
